FAERS Safety Report 12372582 (Version 1)
Quarter: 2016Q2

REPORT INFORMATION
  Report Type: Spontaneous
  Country: US (occurrence: US)
  Receive Date: 20160516
  Receipt Date: 20160516
  Transmission Date: 20160815
  Serious: No
  Sender: FDA-Public Use
  Company Number: US-PFIZER INC-2016248918

PATIENT
  Age: 70 Year
  Sex: Female

DRUGS (1)
  1. ADVIL [Suspect]
     Active Substance: IBUPROFEN
     Indication: PAIN
     Dosage: 6 OR 8 ADVIL DAILY

REACTIONS (3)
  - Ear pain [Not Recovered/Not Resolved]
  - Herpes zoster [Recovered/Resolved]
  - Intentional product use issue [Unknown]
